FAERS Safety Report 9727482 (Version 1)
Quarter: 2013Q4

REPORT INFORMATION
  Report Type: Spontaneous
  Country: NL (occurrence: None)
  Receive Date: 20131127
  Receipt Date: 20131127
  Transmission Date: 20140711
  Serious: Yes (Hospitalization)
  Sender: FDA-Public Use
  Company Number: QPAP20130009

PATIENT
  Sex: 0

DRUGS (1)
  1. Q-PAP [Suspect]
     Indication: PRODUCT USED FOR UNKNOWN INDICATION
     Route: 048

REACTIONS (3)
  - Acute hepatic failure [None]
  - Drug-induced liver injury [None]
  - Chronic hepatic failure [None]
